FAERS Safety Report 17928040 (Version 1)
Quarter: 2020Q2

REPORT INFORMATION
  Report Type: Other
  Country: MK (occurrence: MK)
  Receive Date: 20200622
  Receipt Date: 20200622
  Transmission Date: 20200714
  Serious: Yes (Hospitalization)
  Sender: FDA-Public Use
  Company Number: MK-B.BRAUN MEDICAL INC.-2086519

PATIENT
  Age: 17 Year
  Sex: Female

DRUGS (3)
  1. 0.9% SODIUM CHLORIDE [Concomitant]
     Active Substance: SODIUM CHLORIDE
     Route: 042
  2. SODIUM CHLORIDE INJECTION USP 0264-7800-09 [Suspect]
     Active Substance: SODIUM CHLORIDE
     Indication: ECHINOCOCCIASIS
     Route: 050
  3. DEXTROSE. [Concomitant]
     Active Substance: DEXTROSE
     Route: 042

REACTIONS (3)
  - Generalised tonic-clonic seizure [Recovered/Resolved]
  - Hypernatraemia [Recovered/Resolved]
  - Status epilepticus [Recovered/Resolved]
